FAERS Safety Report 8451665 (Version 2)
Quarter: 2013Q2

REPORT INFORMATION
  Report Type: Spontaneous
  Country: US (occurrence: None)
  Receive Date: 20120216
  Receipt Date: 20130328
  Transmission Date: 20140414
  Serious: Yes (Hospitalization)
  Sender: FDA-Public Use
  Company Number: 20111130CINRY2489

PATIENT
  Age: 46 Year
  Sex: Female

DRUGS (6)
  1. CINRYZE [Suspect]
     Indication: HEREDITARY ANGIOEDEMA
     Dosage: (1000 IU, 1 IN 2 D), INTRAVENOUS
     Route: 042
     Dates: start: 20110724
  2. CINRYZE [Suspect]
     Indication: PROPHYLAXIS
     Dosage: (1000 IU, 1 IN 2 D), INTRAVENOUS
     Route: 042
     Dates: start: 20110724
  3. ATENOLOL (ATENOLOL) [Concomitant]
  4. METFORMIN HYDROCHLORIDE [Concomitant]
  5. RANITIDINE HYDROCHLORIDE [Concomitant]
  6. KALBITOR [Concomitant]

REACTIONS (6)
  - HEREDITARY ANGIOEDEMA [None]
  - HAEMORRHAGE [None]
  - INAPPROPRIATE SCHEDULE OF DRUG ADMINISTRATION [None]
  - MENSTRUATION IRREGULAR [None]
  - DRUG EFFECT DECREASED [None]
  - Inappropriate schedule of drug administration [None]
